FAERS Safety Report 4618023-6 (Version None)
Quarter: 2005Q2

REPORT INFORMATION
  Report Type: 
  Country: None (occurrence: None)
  Receive Date: 20050316
  Receipt Date: 20041116
  Transmission Date: 20051028
  Serious: Yes (Other)
  Sender: FDA-Public Use
  Company Number: S04-USA-07387-01

PATIENT
  Age: 50 Year
  Sex: Female

DRUGS (6)
  1. LEXAPRO [Suspect]
     Indication: ANXIETY
     Dosage: 10 MG QD PO
     Route: 048
     Dates: start: 20040701, end: 20041105
  2. LEXAPRO [Suspect]
     Indication: ANXIETY
     Dosage: 10 MG QD PO
     Route: 048
     Dates: start: 20041201, end: 20041201
  3. NEW PHASE [Suspect]
     Indication: HOT FLUSH
     Dates: end: 20040801
  4. NEW PHASE [Suspect]
     Indication: HOT FLUSH
     Dates: start: 20040101, end: 20041122
  5. NEURONTIN [Concomitant]
  6. ADVIL [Concomitant]

REACTIONS (1)
  - DERMATITIS [None]
